FAERS Safety Report 4607682-X (Version None)
Quarter: 2005Q1

REPORT INFORMATION
  Report Type: 
  Country: None (occurrence: None)
  Receive Date: 20050314
  Receipt Date: 20050303
  Transmission Date: 20050727
  Serious: Yes (Hospitalization)
  Sender: FDA-Public Use
  Company Number: FR-AMGEN-UK118658

PATIENT
  Age: 50 Year
  Sex: Male

DRUGS (12)
  1. NEUPOGEN [Suspect]
     Indication: HIV INFECTION
     Route: 058
  2. BACTRIM [Concomitant]
     Route: 065
  3. OSFOLATE [Concomitant]
     Route: 065
  4. EPIVIR [Concomitant]
     Route: 065
  5. ALDACTONE [Concomitant]
     Route: 065
  6. ATARAX [Concomitant]
     Route: 065
  7. ZOVIRAX [Concomitant]
     Route: 065
  8. HYDROCORTISONE [Concomitant]
     Route: 065
  9. RIVOTRIL [Concomitant]
     Route: 065
  10. DESLORATADINE [Concomitant]
     Route: 065
  11. PANTOPRAZOLE [Concomitant]
     Route: 065
  12. AZELAIC ACID [Concomitant]
     Route: 065

REACTIONS (3)
  - NEUTROPENIA [None]
  - SEPSIS [None]
  - SKIN NECROSIS [None]
